FAERS Safety Report 14521565 (Version 1)
Quarter: 2018Q1

REPORT INFORMATION
  Report Type: Spontaneous
  Country: BE (occurrence: BE)
  Receive Date: 20180212
  Receipt Date: 20180212
  Transmission Date: 20180509
  Serious: Yes (Other)
  Sender: FDA-Public Use
  Company Number: BE-PFIZER INC-2018055736

PATIENT
  Age: 48 Year
  Sex: Male

DRUGS (3)
  1. HUMIRA [Suspect]
     Active Substance: ADALIMUMAB
     Dosage: UNK, WEEKLY
     Route: 058
  2. METHOTREXATE SODIUM. [Suspect]
     Active Substance: METHOTREXATE SODIUM
     Dosage: UNK
  3. HUMIRA [Suspect]
     Active Substance: ADALIMUMAB
     Dosage: 160/80 MG
     Route: 058

REACTIONS (10)
  - Dyspepsia [Unknown]
  - Exostosis [Unknown]
  - Arteriosclerosis [Unknown]
  - Sacroiliitis [Unknown]
  - Joint swelling [Unknown]
  - Encephalopathy [Unknown]
  - Spondylitis [Unknown]
  - Rectal haemorrhage [Recovering/Resolving]
  - Hypoaesthesia [Unknown]
  - Defaecation urgency [Recovering/Resolving]
